FAERS Safety Report 8902139 (Version 1)
Quarter: 2012Q4

REPORT INFORMATION
  Report Type: 
  Country: AU (occurrence: AU)
  Receive Date: 20121112
  Receipt Date: 20121112
  Transmission Date: 20130627
  Serious: Yes (Death, Other)
  Sender: FDA-Public Use
  Company Number: PHHY2012AU103510

PATIENT
  Age: 58 Year
  Sex: Female

DRUGS (1)
  1. EVEROLIMUS [Suspect]
     Indication: IMMUNOSUPPRESSION

REACTIONS (11)
  - Organising pneumonia [Fatal]
  - Bronchitis [Fatal]
  - Dyspnoea [Fatal]
  - Pneumonitis [Fatal]
  - Pulmonary mass [Fatal]
  - Productive cough [Fatal]
  - Respiratory tract ulceration [Fatal]
  - Obstructive airways disorder [Fatal]
  - Pulmonary function test decreased [Fatal]
  - Lung transplant rejection [Unknown]
  - Drug ineffective [Unknown]
